FAERS Safety Report 9119628 (Version 1)
Quarter: 2013Q1

REPORT INFORMATION
  Report Type: Spontaneous
  Country: DE (occurrence: FR)
  Receive Date: 20130226
  Receipt Date: 20130226
  Transmission Date: 20140127
  Serious: Yes (Death)
  Sender: FDA-Public Use
  Company Number: FR-FRI-1000042872

PATIENT
  Age: 91 Year
  Sex: Male

DRUGS (4)
  1. MEMANTINE [Suspect]
     Dosage: 20 MG
     Route: 048
     Dates: start: 20121015, end: 20121106
  2. MEMANTINE [Suspect]
     Dosage: 5 MG
     Route: 048
     Dates: start: 20121126, end: 20121204
  3. KARDEGIC [Concomitant]
  4. NEORECORMON [Concomitant]

REACTIONS (4)
  - Oedema peripheral [Fatal]
  - Cardiac failure [Fatal]
  - Lung disorder [Fatal]
  - Urinary retention [Fatal]
